FAERS Safety Report 9223144 (Version 3)
Quarter: 2013Q2

REPORT INFORMATION
  Report Type: Spontaneous
  Country: FR (occurrence: FR)
  Receive Date: 20130410
  Receipt Date: 20130523
  Transmission Date: 20140414
  Serious: Yes (Life-Threatening, Hospitalization)
  Sender: FDA-Public Use
  Company Number: FR-ROCHE-1210284

PATIENT
  Age: 30 Year
  Sex: Female

DRUGS (2)
  1. ACTILYSE [Suspect]
     Indication: ISCHAEMIC STROKE
     Route: 042
  2. HEPARIN [Concomitant]

REACTIONS (7)
  - Thrombotic thrombocytopenic purpura [Unknown]
  - Microangiopathic haemolytic anaemia [Recovered/Resolved]
  - Thrombocytopenia [Recovered/Resolved]
  - Hemiplegia [Unknown]
  - Cerebral artery thrombosis [Unknown]
  - Pneumonia aspiration [Unknown]
  - Vomiting [Unknown]
